FAERS Safety Report 5485767-6 (Version None)
Quarter: 2007Q4

REPORT INFORMATION
  Report Type: 
  Country: None (occurrence: None)
  Receive Date: 20071015
  Receipt Date: 20071003
  Transmission Date: 20080405
  Serious: Yes (Other)
  Sender: FDA-Public Use
  Company Number: CA-TYCO HEALTHCARE/MALLINCKRODT-T200701224

PATIENT

DRUGS (12)
  1. RESTORIL [Suspect]
     Dosage: 15 MG, QD
     Route: 048
  2. CARBOLITH [Suspect]
     Dosage: 750 MG, UNK
  3. APO-PERPHENAZINE [Suspect]
     Dosage: 4 MG, QD
     Route: 048
  4. APO-IMIPRAMINE [Suspect]
     Dosage: 150 MG, QD
     Route: 048
  5. APO-OXAZEPAM [Suspect]
     Dosage: 15 MG, TID
     Route: 048
  6. TYLENOL W/ CODEINE NO. 3 [Concomitant]
  7. ATROPINE OPHTHALMIC [Concomitant]
  8. MAXITROL                           /00393601/ [Concomitant]
  9. ALPRAZOLAM [Concomitant]
  10. DOXYCYCLINE [Concomitant]
  11. DEPO-TESTOSTERONE [Concomitant]
  12. PROPULSID [Concomitant]

REACTIONS (9)
  - AMNESIA [None]
  - ANGER [None]
  - COGNITIVE DISORDER [None]
  - DEPRESSION [None]
  - FLUSHING [None]
  - MENTAL IMPAIRMENT [None]
  - NAUSEA [None]
  - SEDATION [None]
  - SEROTONIN SYNDROME [None]
